FAERS Safety Report 5852466-8 (Version None)
Quarter: 2008Q3

REPORT INFORMATION
  Report Type: 
  Country: None (occurrence: None)
  Receive Date: 20080821
  Receipt Date: 20080806
  Transmission Date: 20090109
  Serious: Yes (Other)
  Sender: FDA-Public Use
  Company Number: US-BAUSCH-2008BL003432

PATIENT

DRUGS (9)
  1. CYCLOPENTOLATE HYDROCHLORIDE [Suspect]
     Route: 047
     Dates: start: 20080701, end: 20080701
  2. FLURBIPROFEN SODIUM [Suspect]
     Route: 047
     Dates: start: 20080701, end: 20080701
  3. LEVOBUNOLOL HYDROCHLORIDE [Suspect]
     Route: 047
     Dates: start: 20080701, end: 20080701
  4. PHENYLEPHRINE HYDROCHLORIDE OPHTHALMIC SOLUTION USP 2.5% [Suspect]
     Route: 047
     Dates: start: 20080701, end: 20080701
  5. TETRACYCLINE HYDROCHLORIDE [Suspect]
     Route: 047
     Dates: start: 20080701, end: 20080701
  6. BSS [Suspect]
     Route: 047
     Dates: start: 20080701, end: 20080701
  7. VIGAMOX /USA/ [Suspect]
     Route: 047
     Dates: start: 20080701
  8. VISCOAT /USA/ [Suspect]
     Route: 031
     Dates: start: 20080701, end: 20080701
  9. ZYMAR [Suspect]
     Route: 047
     Dates: start: 20080701

REACTIONS (1)
  - IRIDOCYCLITIS [None]
